FAERS Safety Report 6300071-1 (Version None)
Quarter: 2009Q3

REPORT INFORMATION
  Report Type: 
  Country: None (occurrence: None)
  Receive Date: 20090803
  Receipt Date: 20090720
  Transmission Date: 20100115
  Serious: Yes (Hospitalization)
  Sender: FDA-Public Use
  Company Number: ADR9182009

PATIENT
  Age: 98 Year
  Sex: Female

DRUGS (4)
  1. ALENDRONIC ACID (MFR: UNKNOWN) [Suspect]
     Indication: OSTEOPOROSIS
     Dosage: 70 MG/WEEK ORAL
     Route: 048
     Dates: end: 20060818
  2. CALCICHEW D3 [Concomitant]
  3. NITROGLYCERIN [Concomitant]
  4. ACIDEX SUSPENSION [Concomitant]

REACTIONS (1)
  - UPPER GASTROINTESTINAL HAEMORRHAGE [None]
